FAERS Safety Report 7973411-5 (Version None)
Quarter: 2011Q4

REPORT INFORMATION
  Report Type: 
  Country: None (occurrence: None)
  Receive Date: 20111213
  Receipt Date: 20111202
  Transmission Date: 20120403
  Serious: Yes (Hospitalization)
  Sender: FDA-Public Use
  Company Number: FR-SANOFI-AVENTIS-2011SA079237

PATIENT
  Age: 76 Year
  Sex: Male

DRUGS (7)
  1. LANSOPRAZOLE [Concomitant]
     Route: 048
  2. LYRICA [Concomitant]
     Route: 048
  3. DILTIAZEM HCL [Concomitant]
     Route: 048
  4. FINASTERIDE [Concomitant]
     Route: 048
  5. OXYCONTIN [Concomitant]
     Route: 048
  6. LISINOPRIL AND HYDROCHLOROTHIAZIDE [Concomitant]
     Route: 048
  7. LOVENOX [Suspect]
     Indication: ATRIAL FLUTTER
     Route: 058
     Dates: start: 20111117, end: 20111118

REACTIONS (4)
  - NAUSEA [None]
  - ERYTHEMA [None]
  - HEPARIN-INDUCED THROMBOCYTOPENIA [None]
  - MYALGIA [None]
